FAERS Safety Report 8003761-8 (Version None)
Quarter: 2011Q4

REPORT INFORMATION
  Report Type: 
  Country: None (occurrence: None)
  Receive Date: 20111222
  Receipt Date: 20111216
  Transmission Date: 20120403
  Serious: Yes (Other)
  Sender: FDA-Public Use
  Company Number: TN-ROXANE LABORATORIES, INC.-2011-RO-01827RO

PATIENT
  Age: 42 Year
  Sex: Female
  Weight: 62 kg

DRUGS (6)
  1. TACROLIMUS [Suspect]
     Indication: RENAL TRANSPLANT
     Dosage: 5 MG
     Route: 048
  2. CORTICOSTEROIDS [Suspect]
     Indication: RENAL TRANSPLANT
  3. FLUCONAZOLE [Suspect]
     Indication: FUNGAL OESOPHAGITIS
     Dosage: 200 MG
     Route: 048
  4. FLUCONAZOLE [Suspect]
     Indication: ORAL FUNGAL INFECTION
  5. TACROLIMUS [Suspect]
     Dosage: 3.5 MG
     Route: 048
  6. MYCOPHENOLIC ACID [Suspect]
     Indication: RENAL TRANSPLANT

REACTIONS (5)
  - HYPERGLYCAEMIA [None]
  - DRUG INTERACTION [None]
  - TOXICITY TO VARIOUS AGENTS [None]
  - RENAL FAILURE [None]
  - HEPATOTOXICITY [None]
